FAERS Safety Report 10236557 (Version 1)
Quarter: 2014Q2

REPORT INFORMATION
  Report Type: Report from Study
  Country: US (occurrence: US)
  Receive Date: 20140613
  Receipt Date: 20140613
  Transmission Date: 20141212
  Serious: Yes (Other)
  Sender: FDA-Public Use
  Company Number: US-ABBVIE-14P-163-1244165-00

PATIENT
  Sex: Female

DRUGS (12)
  1. HUMIRA [Suspect]
     Indication: PSORIATIC ARTHROPATHY
     Dates: start: 2007, end: 2010
  2. HUMIRA [Suspect]
     Dates: start: 2010, end: 201402
  3. CIMZIA [Suspect]
     Indication: PSORIATIC ARTHROPATHY
     Dates: start: 2014
  4. TOPIRAMATE [Concomitant]
     Indication: MIGRAINE
  5. GABAPENTIN [Concomitant]
     Indication: NEUROPATHY PERIPHERAL
  6. GABAPENTIN [Concomitant]
     Indication: HYPOAESTHESIA
  7. GABAPENTIN [Concomitant]
     Indication: EXOSTOSIS
  8. GABAPENTIN [Concomitant]
     Indication: INTERVERTEBRAL DISC PROTRUSION
  9. GABAPENTIN [Concomitant]
     Indication: OSTEOARTHRITIS
  10. GABAPENTIN [Concomitant]
     Indication: FALL
  11. MONTELUKAST [Concomitant]
     Indication: HYPERSENSITIVITY
  12. LISINOPRIL [Concomitant]
     Indication: HYPERTENSION

REACTIONS (14)
  - Rotator cuff syndrome [Not Recovered/Not Resolved]
  - Anxiety [Not Recovered/Not Resolved]
  - Blood cholesterol increased [Not Recovered/Not Resolved]
  - Pain [Not Recovered/Not Resolved]
  - Arthralgia [Recovered/Resolved]
  - Psoriatic arthropathy [Not Recovered/Not Resolved]
  - Arthralgia [Not Recovered/Not Resolved]
  - Drug tolerance [Not Recovered/Not Resolved]
  - Skin discolouration [Not Recovered/Not Resolved]
  - Unevaluable investigation [Not Recovered/Not Resolved]
  - Musculoskeletal pain [Not Recovered/Not Resolved]
  - Bursitis [Not Recovered/Not Resolved]
  - Rotator cuff syndrome [Not Recovered/Not Resolved]
  - Arthritis [Not Recovered/Not Resolved]
